FAERS Safety Report 7164428-1 (Version None)
Quarter: 2010Q4

REPORT INFORMATION
  Report Type: 
  Country: None (occurrence: None)
  Receive Date: 20101215
  Receipt Date: 20101206
  Transmission Date: 20110411
  Serious: Yes (Other)
  Sender: FDA-Public Use
  Company Number: JP-ASTRAZENECA-2010SE42683

PATIENT
  Age: 68 Year
  Sex: Male
  Weight: 96 kg

DRUGS (2)
  1. AMIAS [Suspect]
     Indication: HYPERTENSION
     Route: 048
     Dates: start: 20090930
  2. SIMVASTATIN [Concomitant]
     Indication: PRODUCT USED FOR UNKNOWN INDICATION
     Route: 048
     Dates: start: 20100201

REACTIONS (1)
  - BLADDER NEOPLASM [None]
